FAERS Safety Report 4973536-2 (Version None)
Quarter: 2006Q2

REPORT INFORMATION
  Report Type: 
  Country: None (occurrence: None)
  Receive Date: 20060407
  Receipt Date: 20060327
  Transmission Date: 20061013
  Serious: Yes (Other)
  Sender: FDA-Public Use
  Company Number: GXKR2006ES01759

PATIENT
  Age: 29 Year
  Sex: Male

DRUGS (2)
  1. RIFAMPICIN [Suspect]
     Indication: BRUCELLOSIS
     Dosage: 600 MG, QD, ORAL
     Route: 048
  2. DOXYCYCLINE HYCLATE [Suspect]
     Dosage: 100 MG, Q12H

REACTIONS (11)
  - ALANINE AMINOTRANSFERASE INCREASED [None]
  - ANAEMIA [None]
  - ASPARTATE AMINOTRANSFERASE INCREASED [None]
  - CHOLURIA [None]
  - DIARRHOEA [None]
  - HAEMODIALYSIS [None]
  - HAEMOGLOBIN DECREASED [None]
  - JAUNDICE [None]
  - NAUSEA [None]
  - NEPHRITIS INTERSTITIAL [None]
  - OLIGURIA [None]
